FAERS Safety Report 26026888 (Version 1)
Quarter: 2025Q4

REPORT INFORMATION
  Report Type: Report from Study
  Country: CA (occurrence: CA)
  Receive Date: 20251111
  Receipt Date: 20251111
  Transmission Date: 20260117
  Serious: Yes (Other)
  Sender: JOHNSON AND JOHNSON
  Company Number: CA-JNJFOC-20251147410

PATIENT
  Age: 47 Year
  Sex: Male
  Weight: 93 kg

DRUGS (1)
  1. SIMPONI [Suspect]
     Active Substance: GOLIMUMAB
     Indication: Rheumatoid arthritis
     Route: 058

REACTIONS (5)
  - Pneumonia [Recovering/Resolving]
  - Nasopharyngitis [Recovering/Resolving]
  - Eyelid margin crusting [Recovering/Resolving]
  - Eye disorder [Recovering/Resolving]
  - Off label use [Unknown]

NARRATIVE: CASE EVENT DATE: 20250101
